FAERS Safety Report 8334295-9 (Version None)
Quarter: 2012Q1

REPORT INFORMATION
  Report Type: 
  Country: None (occurrence: None)
  Receive Date: 20120329
  Receipt Date: 20100602
  Transmission Date: 20120608
  Serious: Yes (Disabling, Other)
  Sender: FDA-Public Use
  Company Number: PHHY2010US31919

PATIENT
  Age: 84 Year
  Sex: Male

DRUGS (3)
  1. EXELON [Suspect]
     Indication: DEMENTIA
     Dosage: 4.6 MG/HR, TRANSDERMAL, 9.5 MG PATCH, TRANSDERMAL
     Route: 062
  2. SIMVASTATIN [Concomitant]
  3. MEPRIL (ENALAPRIL MALEATE) [Concomitant]

REACTIONS (2)
  - NAUSEA [None]
  - CHEST PAIN [None]
